FAERS Safety Report 9170175 (Version 1)
Quarter: 2013Q1

REPORT INFORMATION
  Report Type: Spontaneous
  Country: GB (occurrence: None)
  Receive Date: 20130312
  Receipt Date: 20130312
  Transmission Date: 20140127
  Serious: Yes (Other)
  Sender: FDA-Public Use
  Company Number: 2013AP003417

PATIENT
  Sex: Female

DRUGS (20)
  1. ZOPICLONE [Suspect]
     Indication: BIPOLAR DISORDER
     Route: 048
     Dates: start: 200703
  2. DIAZEPAM (DIAZEPAM) [Concomitant]
  3. DOSULEPIN (DOSULEPIN) [Concomitant]
  4. DULOXETINE (DULOSXETINE) [Concomitant]
  5. ESCITALOPRAM (ESCITALOPRAM) [Concomitant]
  6. FLUOXETINE (FLUOXETINE) [Concomitant]
  7. LITHIUM (LITHIUM) [Concomitant]
  8. LITHIUM CARBONATE (LITHIUM CARBONATE) [Concomitant]
  9. OLANZAPINE (OLANZAPINE) [Concomitant]
  10. PHENELZINE (PHENELZINE) [Concomitant]
  11. QUETIAPINE (QUETIAPINE) [Concomitant]
  12. VALPROIC ACID (VALPROIC ACID) [Concomitant]
  13. TRIHEXYPHENIDYL (TRIHEXYPHENIDYL) [Concomitant]
  14. ZUCLOPENTHIXOL DECANOATE (ZUCLOPENTHIXOL DECANOATE) [Concomitant]
  15. QUETIAPINE (QUETIAPINE) [Concomitant]
  16. QUETIAPINE (QUETIAPINE) [Concomitant]
  17. QUETIAPINE (QUETIAPINE) [Concomitant]
  18. QUETIAPINE (QUETIAPINE) [Concomitant]
  19. ANALGESICS (ANALGESICS) [Concomitant]
  20. CITALOPRAM (CITALOPRAM) [Suspect]
     Indication: BIPOLAR DISORDER
     Route: 048
     Dates: start: 200703

REACTIONS (9)
  - Disorientation [None]
  - Eating disorder symptom [None]
  - Polydipsia [None]
  - Malaise [None]
  - Impaired self-care [None]
  - Amnesia [None]
  - Hypersomnia [None]
  - Feeling abnormal [None]
  - Weight increased [None]
